FAERS Safety Report 8081938-3 (Version None)
Quarter: 2012Q1

REPORT INFORMATION
  Report Type: 
  Country: None (occurrence: None)
  Receive Date: 20120130
  Receipt Date: 20110303
  Transmission Date: 20120608
  Serious: No
  Sender: FDA-Public Use
  Company Number: US-ABBOTT-10P-163-0655525-00

PATIENT
  Sex: Male
  Weight: 75.818 kg

DRUGS (7)
  1. LUPRON DEPOT [Suspect]
     Indication: PROSTATE CANCER
     Dates: start: 20100201
  2. ZOMETA [Concomitant]
     Indication: MULTIPLE MYELOMA
  3. THALIDIMIDE [Concomitant]
     Indication: MULTIPLE MYELOMA
  4. CELVADE [Concomitant]
     Indication: MULTIPLE MYELOMA
  5. BETHNECOL [Concomitant]
     Indication: PROSTATOMEGALY
  6. FLOMAX [Concomitant]
     Indication: PROSTATE CANCER
  7. GABAPENTIN [Concomitant]
     Indication: NEUROPATHY PERIPHERAL

REACTIONS (2)
  - BREAST SWELLING [None]
  - MUSCULOSKELETAL DISCOMFORT [None]
